FAERS Safety Report 10060981 (Version 1)
Quarter: 2014Q2

REPORT INFORMATION
  Report Type: Spontaneous
  Country: KR (occurrence: KR)
  Receive Date: 20140405
  Receipt Date: 20140405
  Transmission Date: 20141212
  Serious: Yes (Other)
  Sender: FDA-Public Use
  Company Number: KR-ROCHE-1378002

PATIENT
  Age: 77 Year
  Sex: Male

DRUGS (3)
  1. LUCENTIS [Suspect]
     Indication: AGE-RELATED MACULAR DEGENERATION
     Dosage: 10 MG/ML. MOST RECENT DOSE RECEIVED ON 27/MAR/2013.
     Route: 050
     Dates: start: 201312
  2. LUCENTIS [Suspect]
     Indication: DIABETIC RETINAL OEDEMA
  3. LUCENTIS [Suspect]
     Indication: RETINAL VEIN OCCLUSION

REACTIONS (1)
  - Peripheral paralysis [Not Recovered/Not Resolved]
